FAERS Safety Report 11138043 (Version 4)
Quarter: 2015Q4

REPORT INFORMATION
  Report Type: Report from Study
  Country: US (occurrence: US)
  Receive Date: 20150526
  Receipt Date: 20151120
  Transmission Date: 20160304
  Serious: Yes (Other)
  Sender: FDA-Public Use
  Company Number: PHEH2015US007373

PATIENT
  Age: 48 Year
  Sex: Female
  Weight: 59.86 kg

DRUGS (7)
  1. VITAMIN C [Concomitant]
     Active Substance: ASCORBIC ACID
     Indication: PRODUCT USED FOR UNKNOWN INDICATION
     Dosage: UNK
     Route: 065
  2. MIRAPEX [Concomitant]
     Active Substance: PRAMIPEXOLE DIHYDROCHLORIDE
     Indication: PRODUCT USED FOR UNKNOWN INDICATION
     Dosage: 0.75 MG, UNK
     Route: 065
  3. VITAMIN D3 [Concomitant]
     Active Substance: CHOLECALCIFEROL
     Indication: PRODUCT USED FOR UNKNOWN INDICATION
     Dosage: UNK
     Route: 065
  4. VITAMIN E [Concomitant]
     Active Substance: .ALPHA.-TOCOPHEROL
     Indication: PRODUCT USED FOR UNKNOWN INDICATION
     Dosage: UNK
     Route: 065
  5. MECLIZINE [Concomitant]
     Active Substance: MECLIZINE\MECLIZINE HYDROCHLORIDE
     Indication: PRODUCT USED FOR UNKNOWN INDICATION
     Dosage: 25 MG, UNK
     Route: 065
  6. GILENYA [Suspect]
     Active Substance: FINGOLIMOD HYDROCHLORIDE
     Indication: MULTIPLE SCLEROSIS
     Dosage: 0.5 MG, QD
     Route: 048
     Dates: start: 20150210, end: 201507
  7. VITAMIN D [Concomitant]
     Active Substance: CHOLECALCIFEROL
     Indication: PRODUCT USED FOR UNKNOWN INDICATION
     Dosage: UNK
     Route: 065

REACTIONS (34)
  - Aneurysm [Recovered/Resolved]
  - Gingival erythema [Unknown]
  - Alopecia [Not Recovered/Not Resolved]
  - Erythema [Unknown]
  - Rash papular [Recovering/Resolving]
  - Skin ulcer [Recovering/Resolving]
  - Multiple sclerosis relapse [Unknown]
  - Gingival disorder [Not Recovered/Not Resolved]
  - Flushing [Unknown]
  - Gingival pain [Unknown]
  - Fear [Unknown]
  - Rash [Recovered/Resolved]
  - Fatigue [Recovering/Resolving]
  - Blood pressure fluctuation [Unknown]
  - Skin discolouration [Recovering/Resolving]
  - Gingival ulceration [Recovering/Resolving]
  - Depressed mood [Unknown]
  - Swelling face [Unknown]
  - Weight increased [Recovering/Resolving]
  - Tongue ulceration [Recovering/Resolving]
  - Pigmentation disorder [Recovering/Resolving]
  - Arthralgia [Unknown]
  - Hypertension [Unknown]
  - Restless legs syndrome [Unknown]
  - Hepatic enzyme increased [Unknown]
  - Oropharyngeal pain [Recovering/Resolving]
  - Cough [Not Recovered/Not Resolved]
  - Constipation [Not Recovered/Not Resolved]
  - Glossodynia [Unknown]
  - Dysphonia [Unknown]
  - Increased tendency to bruise [Unknown]
  - Gingival bleeding [Unknown]
  - Urticaria [Recovered/Resolved]
  - Depression [Not Recovered/Not Resolved]

NARRATIVE: CASE EVENT DATE: 20150415
